FAERS Safety Report 14158174 (Version 4)
Quarter: 2018Q2

REPORT INFORMATION
  Report Type: Spontaneous
  Country: GB (occurrence: GB)
  Receive Date: 20171103
  Receipt Date: 20180409
  Transmission Date: 20180711
  Serious: Yes (Congenital Anomaly, Other)
  Sender: FDA-Public Use
  Company Number: GB-JNJFOC-20171034885

PATIENT
  Sex: Female
  Weight: 1.61 kg

DRUGS (2)
  1. TOPIRAMATE. [Suspect]
     Active Substance: TOPIRAMATE
     Indication: EPILEPSY
     Route: 064
  2. FOLIC ACID. [Concomitant]
     Active Substance: FOLIC ACID
     Route: 064

REACTIONS (12)
  - Hair disorder [Unknown]
  - Anomaly of external ear congenital [Not Recovered/Not Resolved]
  - Body height below normal [Not Recovered/Not Resolved]
  - Withdrawal syndrome [Unknown]
  - Tremor [Recovered/Resolved]
  - Foetal exposure during pregnancy [Recovered/Resolved]
  - Hemiparesis [Not Recovered/Not Resolved]
  - Developmental hip dysplasia [Not Recovered/Not Resolved]
  - Craniofacial deformity [Not Recovered/Not Resolved]
  - Foetal growth restriction [Not Recovered/Not Resolved]
  - Arachnodactyly [Not Recovered/Not Resolved]
  - Congenital muscle absence [Not Recovered/Not Resolved]

NARRATIVE: CASE EVENT DATE: 20121001
